FAERS Safety Report 8398509-1 (Version None)
Quarter: 2012Q2

REPORT INFORMATION
  Report Type: 
  Country: None (occurrence: None)
  Receive Date: 20120531
  Receipt Date: 20120516
  Transmission Date: 20120825
  Serious: Yes (Hospitalization)
  Sender: FDA-Public Use
  Company Number: CH-CELGENEUS-151-21880-12051823

PATIENT
  Age: 34 Year
  Sex: Female
  Weight: 73 kg

DRUGS (11)
  1. PREDNISONE TAB [Suspect]
     Dosage: 2.5 MILLIGRAM
     Route: 048
  2. DEXAMETHASONE [Suspect]
     Indication: MULTIPLE MYELOMA
     Dosage: 5.7143 MILLIGRAM
     Route: 041
     Dates: start: 20101126
  3. PREDNISONE TAB [Suspect]
     Indication: MULTIPLE MYELOMA
     Dosage: 15 MILLIGRAM
     Route: 048
     Dates: start: 20110131
  4. ZOMETA [Suspect]
     Indication: MULTIPLE MYELOMA
     Route: 041
     Dates: start: 20100401, end: 20120406
  5. VALTREX [Concomitant]
     Dosage: 1000 MILLIGRAM
     Route: 048
  6. DIFLUCAN [Concomitant]
     Dosage: 57.1429 MILLIGRAM
     Route: 048
  7. REVLIMID [Suspect]
     Dosage: 25 MILLIGRAM
     Route: 048
     Dates: start: 20110131
  8. IMPLANON [Concomitant]
     Route: 050
     Dates: start: 20110101
  9. PANTOPRAZOLE [Concomitant]
     Dosage: 40 MILLIGRAM
     Route: 048
  10. REVLIMID [Suspect]
     Indication: MULTIPLE MYELOMA
     Dosage: 25 MILLIGRAM
     Route: 048
     Dates: start: 20101126, end: 20110105
  11. NOPIL [Concomitant]
     Dosage: 411.4286 MILLIGRAM
     Route: 048

REACTIONS (1)
  - OSTEONECROSIS OF JAW [None]
